FAERS Safety Report 10233489 (Version 13)
Quarter: 2015Q3

REPORT INFORMATION
  Report Type: Report from Study
  Country: CA (occurrence: CA)
  Receive Date: 20140612
  Receipt Date: 20150918
  Transmission Date: 20151125
  Serious: Yes (Other)
  Sender: FDA-Public Use
  Company Number: PHHY2013CA071343

PATIENT
  Age: 70 Year
  Sex: Male

DRUGS (11)
  1. SANDOSTATIN LAR DEPOT [Suspect]
     Active Substance: OCTREOTIDE ACETATE
     Indication: NEUROENDOCRINE TUMOUR
     Dosage: 30 MG, QMO
     Route: 030
     Dates: start: 20130613
  2. PAZOPANIB [Concomitant]
     Active Substance: PAZOPANIB
     Indication: NEOPLASM MALIGNANT
     Dosage: 4 DF, QD
     Route: 065
     Dates: end: 20141102
  3. AMLODIPINE [Concomitant]
     Active Substance: AMLODIPINE BESYLATE
     Indication: PRODUCT USED FOR UNKNOWN INDICATION
     Dosage: 5 MG, QD
     Route: 065
  4. SANDOSTATIN LAR DEPOT [Suspect]
     Active Substance: OCTREOTIDE ACETATE
     Dosage: 60 MG, TIW (EVERY 3 WEEKS)
     Route: 030
  5. PAZOPANIB [Concomitant]
     Active Substance: PAZOPANIB
     Route: 065
     Dates: start: 20141125, end: 20141206
  6. SANDOSTATIN LAR DEPOT [Suspect]
     Active Substance: OCTREOTIDE ACETATE
     Dosage: 60 MG, TIW (EVERY 3 WEEKS)
     Route: 030
  7. SANDOSTATIN [Suspect]
     Active Substance: OCTREOTIDE ACETATE
     Indication: NEUROENDOCRINE TUMOUR
     Dosage: 200 UG, BID
     Route: 058
     Dates: start: 20130515
  8. SANDOSTATIN LAR DEPOT [Suspect]
     Active Substance: OCTREOTIDE ACETATE
     Dosage: 30 MG, EVERY 3 WEEKS
     Route: 030
     Dates: start: 20130910
  9. SANDOSTATIN LAR DEPOT [Suspect]
     Active Substance: OCTREOTIDE ACETATE
     Dosage: 60 MG, MONTHLY (QMO)
     Route: 030
     Dates: start: 201403
  10. SANDOSTATIN LAR DEPOT [Suspect]
     Active Substance: OCTREOTIDE ACETATE
     Dosage: 60 MG, EVERY 4 WEEKS
     Route: 030
  11. PAZOPANIB [Concomitant]
     Active Substance: PAZOPANIB
     Dosage: 3 DF, QD
     Route: 065

REACTIONS (32)
  - Weight decreased [Unknown]
  - Musculoskeletal pain [Unknown]
  - Rash pruritic [Unknown]
  - Diarrhoea [Not Recovered/Not Resolved]
  - Amaurosis fugax [Unknown]
  - Visual acuity reduced [Unknown]
  - Burning sensation [Unknown]
  - Renal impairment [Unknown]
  - Dry skin [Unknown]
  - Pruritus [Unknown]
  - Hepatic neoplasm [Unknown]
  - Blood pressure increased [Unknown]
  - Blindness unilateral [Unknown]
  - Influenza [Unknown]
  - Abdominal pain upper [Unknown]
  - Bowel movement irregularity [Unknown]
  - Fatigue [Unknown]
  - Hepatic function abnormal [Unknown]
  - Pain [Unknown]
  - 5-hydroxyindolacetic acid in urine increased [Unknown]
  - Dizziness [Not Recovered/Not Resolved]
  - Nausea [Unknown]
  - Diabetes mellitus [Unknown]
  - Bone pain [Unknown]
  - Joint swelling [Recovered/Resolved]
  - Carotid artery disease [Unknown]
  - Lactose intolerance [Unknown]
  - Rash [Unknown]
  - Blindness transient [Recovering/Resolving]
  - Hypoaesthesia [Unknown]
  - Hepatomegaly [Not Recovered/Not Resolved]
  - Skin warm [Unknown]

NARRATIVE: CASE EVENT DATE: 2014
